FAERS Safety Report 5132655-0 (Version None)
Quarter: 2006Q4

REPORT INFORMATION
  Report Type: 
  Country: None (occurrence: None)
  Receive Date: 20061017
  Receipt Date: 20060921
  Transmission Date: 20070319
  Serious: Yes (Other)
  Sender: FDA-Public Use
  Company Number: 2006-07-1961

PATIENT
  Age: 63 Year
  Sex: Female

DRUGS (1)
  1. ELOCON [Suspect]
     Indication: LICHEN PLANUS
     Dosage: TOP
     Route: 061
     Dates: end: 20050201

REACTIONS (1)
  - ALVEOLITIS ALLERGIC [None]
